FAERS Safety Report 11116315 (Version 1)
Quarter: 2015Q2

REPORT INFORMATION
  Report Type: Spontaneous
  Country: BR (occurrence: BR)
  Receive Date: 20150515
  Receipt Date: 20150515
  Transmission Date: 20150821
  Serious: Yes (Hospitalization, Disabling, Other)
  Sender: FDA-Public Use
  Company Number: BR-MERCK-1505BRA003683

PATIENT
  Age: 85 Year
  Sex: Female
  Weight: 70 kg

DRUGS (7)
  1. GLIFAGE [Concomitant]
     Active Substance: METFORMIN HYDROCHLORIDE
     Indication: DIABETES MELLITUS
     Dosage: 500 MG, BID
     Dates: start: 2010
  2. VITAMIN D [Concomitant]
     Active Substance: CHOLECALCIFEROL
     Indication: VITAMIN SUPPLEMENTATION
     Dosage: STRENGTH 10 DROPS, TOTAL DAILY DOSE 10 DROPS, QD
     Dates: start: 2009
  3. CALCIUM (UNSPECIFIED) [Concomitant]
     Active Substance: CALCIUM
     Indication: OSTEOPOROSIS
     Dosage: UNK
     Dates: start: 2014
  4. JANUVIA [Suspect]
     Active Substance: SITAGLIPTIN PHOSPHATE
     Indication: DIABETES MELLITUS
     Dosage: 100 MG, QD
     Route: 048
     Dates: start: 2011
  5. JANUVIA [Suspect]
     Active Substance: SITAGLIPTIN PHOSPHATE
     Dosage: PATIENT TOOK TWO TABLETS
     Route: 048
     Dates: start: 20150505, end: 20150505
  6. LORAX (LORAZEPAM) [Concomitant]
     Indication: INSOMNIA
     Dosage: 1 DF, QD
     Dates: start: 2000
  7. ANAFRANIL [Concomitant]
     Active Substance: CLOMIPRAMINE HYDROCHLORIDE
     Indication: DEPRESSION
     Dosage: 1 DF, QD
     Dates: start: 1994

REACTIONS (14)
  - Femur fracture [Recovered/Resolved with Sequelae]
  - Limb deformity [Not Recovered/Not Resolved]
  - Dizziness [Recovered/Resolved]
  - Overdose [Unknown]
  - Blood pressure increased [Recovered/Resolved]
  - Asthenia [Unknown]
  - Vision blurred [Not Recovered/Not Resolved]
  - Hand fracture [Recovered/Resolved]
  - Retinal disorder [Not Recovered/Not Resolved]
  - Peripheral swelling [Recovered/Resolved]
  - Abdominal pain upper [Unknown]
  - Fall [Recovered/Resolved]
  - Fall [Recovered/Resolved]
  - Mental disorder [Unknown]

NARRATIVE: CASE EVENT DATE: 2012
